FAERS Safety Report 9969971 (Version 1)
Quarter: 2014Q1

REPORT INFORMATION
  Report Type: Spontaneous
  Country: US (occurrence: None)
  Receive Date: 20140305
  Receipt Date: 20140305
  Transmission Date: 20141002
  Serious: Yes (Death)
  Sender: FDA-Public Use
  Company Number: None

PATIENT
  Age: 51 Year
  Sex: Male
  Weight: 95.26 kg

DRUGS (1)
  1. DEPO-TESTOSTERONE [Suspect]
     Route: 030
     Dates: start: 20120518, end: 20130502

REACTIONS (2)
  - Cardio-respiratory arrest [None]
  - Sudden death [None]
